FAERS Safety Report 19106858 (Version 1)
Quarter: 2021Q2

REPORT INFORMATION
  Report Type: Spontaneous
  Country: US (occurrence: US)
  Receive Date: 20210408
  Receipt Date: 20210408
  Transmission Date: 20210717
  Serious: Yes (Hospitalization, Other)
  Sender: FDA-Public Use
  Company Number: US-LUPIN PHARMACEUTICALS INC.-2021-04251

PATIENT
  Age: 45 Year
  Sex: Female

DRUGS (2)
  1. SULFAMETHOXAZOLE AND TRIMETHOPRIM [Suspect]
     Active Substance: SULFAMETHOXAZOLE\TRIMETHOPRIM
     Indication: ARTHROPOD BITE
     Dosage: 40/200MG/5ML, BID?SUSPENSION
     Route: 048
  2. DOXYCYCLINE. [Concomitant]
     Active Substance: DOXYCYCLINE
     Indication: DRUG THERAPY
     Dosage: UNK
     Route: 065

REACTIONS (2)
  - Granulomatous liver disease [Recovering/Resolving]
  - Cholestasis [Recovering/Resolving]
